FAERS Safety Report 9518318 (Version 1)
Quarter: 2013Q1

REPORT INFORMATION
  Report Type: Spontaneous
  Country: US (occurrence: None)
  Receive Date: 20130305
  Receipt Date: 20130305
  Transmission Date: 20140127
  Serious: Yes (Other)
  Sender: FDA-Public Use
  Company Number: 163-21880-12072391

PATIENT
  Age: 38 Year
  Sex: Female

DRUGS (5)
  1. REVLIMID (LENALIDOMIDE) [Suspect]
     Indication: PLASMA CELL MYELOMA
     Dosage: 25 MG, 21 IN 21 D, PO
     Route: 048
     Dates: start: 20120709
  2. DEXAMETHASONE(DEXAMETHAZONE) [Concomitant]
  3. PAMIDRONATE DISODIUM(PAMIDRONATE DISODIUM) [Concomitant]
  4. EFFEXOR XR (VENLAFAXINE HYDROCHLORIDE) [Concomitant]
  5. BACTRIM DS (BACTRIUM) [Concomitant]

REACTIONS (5)
  - Adverse drug reaction [None]
  - Back pain [None]
  - Fatigue [None]
  - Nausea [None]
  - Cough [None]
